FAERS Safety Report 20399823 (Version 2)
Quarter: 2022Q1

REPORT INFORMATION
  Report Type: Spontaneous
  Country: US (occurrence: US)
  Receive Date: 20220131
  Receipt Date: 20220201
  Transmission Date: 20220424
  Serious: Yes (Hospitalization)
  Sender: FDA-Public Use
  Company Number: US-ABBVIE-21K-163-3965018-00

PATIENT
  Age: 35 Year
  Sex: Female
  Weight: 59.020 kg

DRUGS (7)
  1. HUMIRA [Suspect]
     Active Substance: ADALIMUMAB
     Indication: Colitis ulcerative
     Route: 058
     Dates: start: 201902
  2. HUMIRA [Suspect]
     Active Substance: ADALIMUMAB
     Indication: Ankylosing spondylitis
  3. MERCAPTOPURINE [Concomitant]
     Active Substance: MERCAPTOPURINE
     Indication: Colitis ulcerative
  4. PREDNISONE [Concomitant]
     Active Substance: PREDNISONE
     Indication: Colitis ulcerative
  5. SPIRONOLACTONE [Concomitant]
     Active Substance: SPIRONOLACTONE
     Indication: Acne
  6. PFIZER-BIONTECH COVID-19 VACCINE [Concomitant]
     Active Substance: TOZINAMERAN
     Indication: COVID-19 immunisation
     Route: 030
     Dates: start: 20210318, end: 20210318
  7. PFIZER-BIONTECH COVID-19 VACCINE [Concomitant]
     Active Substance: TOZINAMERAN
     Route: 030
     Dates: start: 20210408, end: 20210408

REACTIONS (7)
  - Diarrhoea [Not Recovered/Not Resolved]
  - Dehydration [Recovered/Resolved]
  - Constipation [Not Recovered/Not Resolved]
  - Inflammation [Recovering/Resolving]
  - Haematochezia [Not Recovered/Not Resolved]
  - Abdominal pain [Not Recovered/Not Resolved]
  - Vomiting [Recovered/Resolved]

NARRATIVE: CASE EVENT DATE: 20210601
